FAERS Safety Report 7239313-7 (Version None)
Quarter: 2011Q1

REPORT INFORMATION
  Report Type: 
  Country: None (occurrence: None)
  Receive Date: 20110121
  Receipt Date: 20110114
  Transmission Date: 20110831
  Serious: Yes (Hospitalization)
  Sender: FDA-Public Use
  Company Number: US-US-EMD SERONO, INC.-7004686

PATIENT
  Sex: Female
  Weight: 121 kg

DRUGS (3)
  1. REBIF [Suspect]
     Indication: MULTIPLE SCLEROSIS
     Route: 058
     Dates: start: 20080306
  2. UNSPECIFIED HEART MEDICATIONS [Concomitant]
     Indication: CARDIAC DISORDER
  3. PROZAC [Concomitant]
     Indication: DEPRESSION

REACTIONS (2)
  - AMNESIA [None]
  - MYOCARDIAL INFARCTION [None]
